FAERS Safety Report 21692885 (Version 1)
Quarter: 2022Q4

REPORT INFORMATION
  Report Type: Spontaneous
  Country: FI (occurrence: FI)
  Receive Date: 20221207
  Receipt Date: 20221207
  Transmission Date: 20230112
  Serious: Yes (Hospitalization)
  Sender: FDA-Public Use
  Company Number: None

PATIENT
  Age: 60 Year
  Sex: Male

DRUGS (2)
  1. OXALIPLATIN [Suspect]
     Active Substance: OXALIPLATIN
     Indication: Gastrointestinal carcinoma
     Dosage: 230,MG
     Dates: start: 20220830
  2. FERRIC CARBOXYMALTOSE [Suspect]
     Active Substance: FERRIC CARBOXYMALTOSE
     Indication: Product used for unknown indication
     Dosage: 1,G,X1
     Dates: start: 20221011, end: 20221011

REACTIONS (7)
  - Localised oedema [Recovering/Resolving]
  - Oedema peripheral [Recovering/Resolving]
  - Throat irritation [Recovering/Resolving]
  - Urticaria [Recovering/Resolving]
  - Glossodynia [Recovering/Resolving]
  - Eyelid oedema [Recovering/Resolving]
  - Nasal congestion [Recovering/Resolving]

NARRATIVE: CASE EVENT DATE: 20221011
